FAERS Safety Report 8463637-9 (Version None)
Quarter: 2012Q2

REPORT INFORMATION
  Report Type: 
  Country: None (occurrence: None)
  Receive Date: 20120625
  Receipt Date: 20120614
  Transmission Date: 20120825
  Serious: Yes (Hospitalization)
  Sender: FDA-Public Use
  Company Number: DK-ASTRAZENECA-2012SE40008

PATIENT
  Age: 62 Year
  Sex: Male

DRUGS (1)
  1. PROPOFOL [Suspect]
     Indication: SURGERY
     Route: 042
     Dates: start: 20120601, end: 20120601

REACTIONS (2)
  - PANCREATITIS ACUTE [None]
  - ABDOMINAL PAIN [None]
